FAERS Safety Report 22118086 (Version 1)
Quarter: 2023Q1

REPORT INFORMATION
  Report Type: Spontaneous
  Country: US (occurrence: US)
  Receive Date: 20230321
  Receipt Date: 20230321
  Transmission Date: 20230418
  Serious: No
  Sender: FDA-Public Use
  Company Number: US-PROVENTION BIO, INC.-US-PRAG-23-00010

PATIENT

DRUGS (6)
  1. TZIELD [Suspect]
     Active Substance: TEPLIZUMAB-MZWV
     Indication: Type 1 diabetes mellitus
     Dosage: 0.6 MILLILITER, SINGLE
     Route: 042
     Dates: start: 20230210
  2. TZIELD [Suspect]
     Active Substance: TEPLIZUMAB-MZWV
     Dosage: 1.3 MILLILITER, SINGLE
     Route: 042
     Dates: start: 20230211
  3. TZIELD [Suspect]
     Active Substance: TEPLIZUMAB-MZWV
     Dosage: 2.5 MILLILITER, SINGLE
     Route: 042
     Dates: start: 20230212
  4. TZIELD [Suspect]
     Active Substance: TEPLIZUMAB-MZWV
     Dosage: 5 MILLILITER, SINGLE
     Route: 042
     Dates: start: 20230213
  5. TZIELD [Suspect]
     Active Substance: TEPLIZUMAB-MZWV
     Dosage: 10.30 MILLILITRE PER SQUARE METRE, SINGLE
     Route: 042
     Dates: start: 20230214
  6. TZIELD [Suspect]
     Active Substance: TEPLIZUMAB-MZWV
     Dosage: 10.30 MILLILITRE PER SQUARE METRE, SINGLE
     Route: 042
     Dates: start: 20230215

REACTIONS (3)
  - Nasal congestion [Unknown]
  - White blood cell count decreased [Unknown]
  - Pyrexia [Recovered/Resolved]

NARRATIVE: CASE EVENT DATE: 20230212
